FAERS Safety Report 11656708 (Version 2)
Quarter: 2015Q4

REPORT INFORMATION
  Report Type: Spontaneous
  Country: US (occurrence: None)
  Receive Date: 20151023
  Receipt Date: 20151029
  Transmission Date: 20160304
  Serious: No
  Sender: FDA-Public Use
  Company Number: US-MDT-ADR-2015-02013

PATIENT
  Age: 69 Year
  Sex: Female

DRUGS (1)
  1. BACLOFEN INTRATHECAL (2000 MCG/ML) [Suspect]
     Active Substance: BACLOFEN
     Indication: MUSCLE SPASTICITY
     Dosage: 153 MCG/DAY

REACTIONS (4)
  - Overdose [None]
  - Asthenia [None]
  - Incorrect drug administration rate [None]
  - Lethargy [None]
